FAERS Safety Report 9559744 (Version 1)
Quarter: 2013Q3

REPORT INFORMATION
  Report Type: Spontaneous
  Country: US (occurrence: None)
  Receive Date: 20130906
  Receipt Date: 20130906
  Transmission Date: 20140515
  Serious: Yes (Hospitalization)
  Sender: FDA-Public Use
  Company Number: 163-POMAL-13072770

PATIENT
  Age: 74 Year
  Sex: Male

DRUGS (9)
  1. POMALYST (POMALIDOMIDE) (CAPSULES) [Suspect]
     Indication: PLASMA CELL MYELOMA
     Route: 048
     Dates: start: 20130524
  2. ASPIRIN [Concomitant]
  3. CALCIUM (CALCIUM) [Concomitant]
  4. DEXAMETHASONE (DEXAMETHASONE) [Concomitant]
  5. MVI (MVI) [Concomitant]
  6. OXYCONTIN (OXYCODONE HYDROCHLORIDE) [Concomitant]
  7. PRILOSEC [Concomitant]
  8. PROBIOTIC (BIFIDOBACTERIUM LACTIS) [Concomitant]
  9. VITAMIN B12 (CYANOCOBALAMIN) [Concomitant]

REACTIONS (1)
  - Pneumonia [None]
